FAERS Safety Report 17518981 (Version 1)
Quarter: 2020Q1

REPORT INFORMATION
  Report Type: Spontaneous
  Country: GB (occurrence: GB)
  Receive Date: 20200310
  Receipt Date: 20200310
  Transmission Date: 20200409
  Serious: Yes (Hospitalization, Disabling)
  Sender: FDA-Public Use
  Company Number: GB-TEVA-2020-GB-1196282

PATIENT
  Age: 78 Year
  Sex: Female
  Weight: 66 kg

DRUGS (10)
  1. ALENDRONIC ACID [Concomitant]
     Active Substance: ALENDRONIC ACID
  2. MIRTAZAPINE. [Concomitant]
     Active Substance: MIRTAZAPINE
  3. ADCAL-D3 [Concomitant]
     Active Substance: CALCIUM CARBONATE\CHOLECALCIFEROL
  4. VENLAFAXINE [Concomitant]
     Active Substance: VENLAFAXINE HYDROCHLORIDE
  5. ACETYLSALICYLIC ACID [Concomitant]
     Active Substance: ASPIRIN
  6. GLICLAZIDE [Concomitant]
     Active Substance: GLICLAZIDE
  7. PIOGLITAZONE. [Suspect]
     Active Substance: PIOGLITAZONE
     Indication: TYPE 2 DIABETES MELLITUS
     Dosage: 30 MG
     Route: 048
     Dates: start: 20090326
  8. SITAGLIPTIN [Concomitant]
     Active Substance: SITAGLIPTIN
  9. SIMVASTATIN. [Concomitant]
     Active Substance: SIMVASTATIN
  10. PREGABALIN. [Concomitant]
     Active Substance: PREGABALIN

REACTIONS (3)
  - Clavicle fracture [Not Recovered/Not Resolved]
  - Radius fracture [Not Recovered/Not Resolved]
  - Fall [Unknown]

NARRATIVE: CASE EVENT DATE: 20200108
